FAERS Safety Report 10983098 (Version 1)
Quarter: 2015Q1

REPORT INFORMATION
  Report Type: Spontaneous
  Country: CA (occurrence: None)
  Receive Date: 20150302
  Receipt Date: 20150302
  Transmission Date: 20150721
  Serious: Yes (Life-Threatening, Hospitalization)
  Sender: FDA-Public Use
  Company Number: 2014SYM00113

PATIENT
  Age: 66 Year
  Sex: Female
  Weight: 108 kg

DRUGS (7)
  1. NORTRIPTYLINE (NORTRIPTYLINE) [Concomitant]
     Active Substance: NORTRIPTYLINE
  2. PHENYTOIN. [Concomitant]
     Active Substance: PHENYTOIN
  3. METFORMIN [Concomitant]
     Active Substance: METFORMIN HYDROCHLORIDE
  4. ASPIRIN. [Concomitant]
     Active Substance: ASPIRIN
  5. ACEON [Suspect]
     Active Substance: PERINDOPRIL ERBUMINE
     Indication: PRODUCT USED FOR UNKNOWN INDICATION
     Route: 048
  6. VALPROIC ACID (VALPROIC ACID) [Concomitant]
     Active Substance: VALPROIC ACID
  7. VENLAFAXINE [Concomitant]
     Active Substance: VENLAFAXINE HYDROCHLORIDE

REACTIONS (1)
  - Angioedema [None]

NARRATIVE: CASE EVENT DATE: 2014
